FAERS Safety Report 7083998-5 (Version None)
Quarter: 2010Q4

REPORT INFORMATION
  Report Type: 
  Country: None (occurrence: None)
  Receive Date: 20101104
  Receipt Date: 20101028
  Transmission Date: 20110411
  Serious: Yes (Hospitalization)
  Sender: FDA-Public Use
  Company Number: JP-EISAI INC.-E2090-01372-SPO-JP

PATIENT
  Sex: Male
  Weight: 66 kg

DRUGS (10)
  1. EXCEGRAN [Suspect]
     Indication: EPILEPSY
     Dosage: 200 MG DAILY
     Route: 048
     Dates: start: 20090105, end: 20090120
  2. TEGRETOL [Suspect]
     Indication: EPILEPSY
     Dosage: 200 MG
     Route: 048
     Dates: start: 20081222, end: 20090105
  3. ALESION [Concomitant]
     Indication: EPILEPSY
     Route: 048
     Dates: start: 20090305, end: 20100927
  4. OLMETEC [Concomitant]
     Indication: HYPERTENSION
     Dosage: 10 MG
     Route: 048
     Dates: start: 20080908
  5. DEPAKENE [Concomitant]
     Indication: EPILEPSY
     Dosage: 400 MG
     Route: 048
     Dates: start: 20080918, end: 20081222
  6. PARIET [Concomitant]
     Dosage: 10 MG
     Route: 048
     Dates: start: 20090127, end: 20100923
  7. BENET [Concomitant]
     Dosage: 17.5 MG
     Route: 048
  8. LORFENAMIN [Concomitant]
     Dosage: 120 MG
     Route: 048
  9. OMEPRAL [Concomitant]
     Dosage: 40 MG
  10. UNASYN [Concomitant]
     Dosage: 6 GM

REACTIONS (1)
  - OCULOMUCOCUTANEOUS SYNDROME [None]
